FAERS Safety Report 12834249 (Version 1)
Quarter: 2016Q4

REPORT INFORMATION
  Report Type: Spontaneous
  Country: GB (occurrence: GB)
  Receive Date: 20161010
  Receipt Date: 20161010
  Transmission Date: 20170207
  Serious: Yes (Other)
  Sender: FDA-Public Use
  Company Number: GB-B. BRAUN MEDICAL INC.-1058169

PATIENT
  Age: 69 Year
  Sex: Female

DRUGS (5)
  1. METRONIDAZOLE. [Suspect]
     Active Substance: METRONIDAZOLE
     Dates: start: 20160907, end: 20160914
  2. IBUPROFEN. [Concomitant]
     Active Substance: IBUPROFEN
  3. LEVOTHYROXINE. [Concomitant]
     Active Substance: LEVOTHYROXINE
  4. PARACETAMOL [Concomitant]
     Active Substance: ACETAMINOPHEN
  5. ATORVASTATIN [Concomitant]
     Active Substance: ATORVASTATIN

REACTIONS (9)
  - Fatigue [Unknown]
  - Depression [Unknown]
  - Personality change [Unknown]
  - Diarrhoea [Unknown]
  - Confusional state [Unknown]
  - Dysgeusia [Unknown]
  - Tongue coated [Unknown]
  - Abdominal discomfort [Unknown]
  - Chromaturia [Unknown]

NARRATIVE: CASE EVENT DATE: 20160907
